FAERS Safety Report 5223533-7 (Version None)
Quarter: 2007Q1

REPORT INFORMATION
  Report Type: 
  Country: None (occurrence: None)
  Receive Date: 20070125
  Receipt Date: 20070122
  Transmission Date: 20070707
  Serious: Yes (Death)
  Sender: FDA-Public Use
  Company Number: 163-20785-07010124

PATIENT
  Age: 73 Year
  Sex: Female

DRUGS (2)
  1. THALOMID [Suspect]
     Indication: MULTIPLE MYELOMA
     Dosage: 50 + 100 MG, 1 IN 1 D, ORAL
     Route: 048
     Dates: start: 20050301, end: 20050801
  2. THALOMID [Suspect]
     Indication: MULTIPLE MYELOMA
     Dosage: 50 + 100 MG, 1 IN 1 D, ORAL
     Route: 048
     Dates: start: 20050801, end: 20050901

REACTIONS (2)
  - FALL [None]
  - HEAD INJURY [None]
